FAERS Safety Report 12200019 (Version 2)
Quarter: 2016Q1

REPORT INFORMATION
  Report Type: Spontaneous
  Country: FR (occurrence: FR)
  Receive Date: 20160322
  Receipt Date: 20160325
  Transmission Date: 20160526
  Serious: Yes (Hospitalization)
  Sender: FDA-Public Use
  Company Number: FR-009507513-1603FRA009849

PATIENT
  Age: 73 Year
  Sex: Female

DRUGS (7)
  1. XELEVIA [Suspect]
     Active Substance: SITAGLIPTIN PHOSPHATE
     Indication: TYPE 2 DIABETES MELLITUS
     Dosage: UNK
     Route: 048
     Dates: start: 20120101, end: 20150907
  2. AMAREL [Concomitant]
     Active Substance: GLIMEPIRIDE
     Dosage: UNK
  3. LIPANTHYL [Concomitant]
     Active Substance: FENOFIBRATE
     Dosage: UNK
  4. LEVOTHYROXINE SODIUM. [Concomitant]
     Active Substance: LEVOTHYROXINE SODIUM
     Dosage: UNK
     Route: 048
  5. LODOZ [Concomitant]
     Active Substance: BISOPROLOL FUMARATE\HYDROCHLOROTHIAZIDE
     Dosage: UNK
  6. OLMESARTAN MEDOXOMIL. [Suspect]
     Active Substance: OLMESARTAN MEDOXOMIL
     Dosage: UNK
     Route: 048
     Dates: start: 20120101, end: 20150907
  7. ODRIK [Concomitant]
     Active Substance: TRANDOLAPRIL
     Dosage: UNK

REACTIONS (1)
  - Pemphigoid [Recovered/Resolved]

NARRATIVE: CASE EVENT DATE: 201507
